FAERS Safety Report 6428101-7 (Version None)
Quarter: 2009Q4

REPORT INFORMATION
  Report Type: 
  Country: None (occurrence: None)
  Receive Date: 20091102
  Receipt Date: 20091019
  Transmission Date: 20100525
  Serious: Yes (Hospitalization)
  Sender: FDA-Public Use
  Company Number: RENA-1000572

PATIENT
  Age: 60 Year
  Sex: Female
  Weight: 62 kg

DRUGS (2)
  1. RENVELA [Suspect]
     Indication: HYPERPHOSPHATAEMIA
     Dosage: SACHET ONCE A DAY, ORAL
     Route: 048
     Dates: start: 20090924
  2. L-THYROXINE    (LEVOTHYROXINE) [Concomitant]

REACTIONS (3)
  - GENERAL PHYSICAL HEALTH DETERIORATION [None]
  - OSTEOLYSIS [None]
  - SUBILEUS [None]
